FAERS Safety Report 9961141 (Version 1)
Quarter: 2014Q1

REPORT INFORMATION
  Report Type: Spontaneous
  Country: US (occurrence: None)
  Receive Date: 20140304
  Receipt Date: 20140304
  Transmission Date: 20141002
  Serious: Yes (Life-Threatening)
  Sender: FDA-Public Use
  Company Number: None

PATIENT
  Age: 69 Year
  Sex: Male
  Weight: 90.5 kg

DRUGS (4)
  1. NALOXONE [Suspect]
     Indication: HYPOXIA
     Route: 042
     Dates: start: 20110910, end: 20110910
  2. NALOXONE [Suspect]
     Indication: HYPERCAPNIA
     Route: 042
     Dates: start: 20110910, end: 20110910
  3. NALOXONE [Suspect]
     Indication: RESPIRATORY FAILURE
     Route: 042
     Dates: start: 20110910, end: 20110910
  4. NALOXONE [Suspect]
     Indication: DEPRESSED LEVEL OF CONSCIOUSNESS
     Route: 042
     Dates: start: 20110910, end: 20110910

REACTIONS (3)
  - Convulsion [None]
  - Grand mal convulsion [None]
  - Overdose [None]
